FAERS Safety Report 16027607 (Version 1)
Quarter: 2019Q1

REPORT INFORMATION
  Report Type: Spontaneous
  Country: JP (occurrence: JP)
  Receive Date: 20190304
  Receipt Date: 20190304
  Transmission Date: 20190418
  Serious: Yes (Hospitalization, Other)
  Sender: FDA-Public Use
  Company Number: JP-VIIV HEALTHCARE LIMITED-JP2019JPN036040

PATIENT
  Age: 79 Year
  Sex: Female

DRUGS (1)
  1. ZEFIX [Suspect]
     Active Substance: LAMIVUDINE
     Indication: HEPATITIS
     Dosage: 25 MG, 1D
     Route: 048

REACTIONS (3)
  - Myocardial infarction [Unknown]
  - Prescribed underdose [Unknown]
  - Product use issue [Unknown]
